FAERS Safety Report 14777818 (Version 1)
Quarter: 2018Q2

REPORT INFORMATION
  Report Type: Spontaneous
  Country: FR (occurrence: FR)
  Receive Date: 20180419
  Receipt Date: 20180419
  Transmission Date: 20180711
  Serious: Yes (Other)
  Sender: FDA-Public Use
  Company Number: FR-MERCK KGAA-2046036

PATIENT
  Age: 44 Year
  Sex: Female

DRUGS (1)
  1. NOVOTHYROX [Suspect]
     Active Substance: LEVOTHYROXINE SODIUM
     Indication: HYPOTHYROIDISM

REACTIONS (21)
  - Tachycardia [None]
  - Heart rate decreased [Not Recovered/Not Resolved]
  - Asthenia [None]
  - Memory impairment [None]
  - Emotional disorder [None]
  - Apathy [None]
  - Social avoidant behaviour [Not Recovered/Not Resolved]
  - Blood thyroid stimulating hormone increased [None]
  - Blood pressure abnormal [None]
  - Musculoskeletal stiffness [Not Recovered/Not Resolved]
  - Feeling cold [Not Recovered/Not Resolved]
  - Dyspnoea [Not Recovered/Not Resolved]
  - Libido decreased [None]
  - Fatigue [None]
  - Disturbance in attention [None]
  - Loss of personal independence in daily activities [Not Recovered/Not Resolved]
  - Headache [Not Recovered/Not Resolved]
  - Cardiac discomfort [Not Recovered/Not Resolved]
  - Crying [None]
  - Aggression [None]
  - Mood swings [None]

NARRATIVE: CASE EVENT DATE: 20170908
